FAERS Safety Report 14675001 (Version 1)
Quarter: 2018Q1

REPORT INFORMATION
  Report Type: Spontaneous
  Country: JP (occurrence: JP)
  Receive Date: 20180323
  Receipt Date: 20180323
  Transmission Date: 20180509
  Serious: Yes (Life-Threatening, Hospitalization, Other)
  Sender: FDA-Public Use
  Company Number: JP-BAYER-2017-250216

PATIENT
  Age: 67 Year
  Sex: Male
  Weight: 72 kg

DRUGS (14)
  1. NEXAVAR [Suspect]
     Active Substance: SORAFENIB
     Indication: HEPATOCELLULAR CARCINOMA
     Dosage: DAILY DOSE 800 MG
     Route: 048
     Dates: start: 20171212, end: 20171218
  2. LASIX [Concomitant]
     Active Substance: FUROSEMIDE
     Indication: OEDEMA
     Dosage: 20 MG, QD
     Route: 048
     Dates: start: 20171204, end: 20171226
  3. AZILSARTAN [Concomitant]
     Active Substance: AZILSARTAN KAMEDOXOMIL
     Indication: HYPERTENSION
     Dosage: 40 MG, QD
     Route: 048
     Dates: start: 20171204
  4. LOPEMIN [Concomitant]
     Active Substance: LOPERAMIDE HYDROCHLORIDE
     Dosage: UNK
     Dates: start: 20180102
  5. AMLODIPINE [Concomitant]
     Active Substance: AMLODIPINE BESYLATE
     Indication: HYPERTENSION
     Dosage: 5 MG, QD
     Route: 048
     Dates: start: 20171204, end: 20171207
  6. ADALAT CC [Concomitant]
     Active Substance: NIFEDIPINE
     Indication: HYPERTENSION
     Dosage: 40 MG, QD
     Route: 048
     Dates: start: 20171207
  7. ALDOMET [Concomitant]
     Active Substance: METHYLDOPA
     Indication: HYPERTENSION
     Dosage: DAILY DOSE 750 MG
     Route: 048
     Dates: start: 20171207
  8. CARVEDILOL. [Concomitant]
     Active Substance: CARVEDILOL
     Indication: HYPERTENSION
  9. NERISONA OINTMENT 0.1% [Concomitant]
     Dosage: UNK
     Route: 061
     Dates: start: 20180105
  10. CARVEDILOL. [Concomitant]
     Active Substance: CARVEDILOL
     Indication: CARDIAC FAILURE
     Dosage: 10 MG, QD
     Route: 048
     Dates: start: 20171205, end: 20171224
  11. FLUITRAN [Concomitant]
     Active Substance: TRICHLORMETHIAZIDE
     Indication: OEDEMA
     Dosage: 2 MG, QD
     Route: 048
     Dates: start: 20171213
  12. TOLVAPTAN [Concomitant]
     Active Substance: TOLVAPTAN
     Indication: OEDEMA
     Dosage: 7.5 MG, QD
     Route: 048
     Dates: start: 20171226
  13. NEXAVAR [Suspect]
     Active Substance: SORAFENIB
     Indication: HEPATOCELLULAR CARCINOMA
     Dosage: DAILY DOSE 400 MG
     Route: 048
     Dates: start: 20171228, end: 20180109
  14. ALMETA [Concomitant]
     Active Substance: ALCLOMETASONE DIPROPIONATE
     Dosage: UNK
     Route: 061
     Dates: start: 20180111

REACTIONS (27)
  - Aspartate aminotransferase decreased [Recovering/Resolving]
  - Lip injury [None]
  - Blood lactate dehydrogenase increased [None]
  - Dysphonia [None]
  - Alanine aminotransferase increased [None]
  - Palmar-plantar erythrodysaesthesia syndrome [None]
  - Tongue erythema [None]
  - Blood creatinine increased [None]
  - Hypoaesthesia oral [Recovered/Resolved]
  - Diarrhoea [Recovered/Resolved]
  - Skin exfoliation [None]
  - Alanine aminotransferase decreased [Recovering/Resolving]
  - Blood alkaline phosphatase decreased [Recovering/Resolving]
  - Drug-induced liver injury [Recovered/Resolved]
  - Ascites [None]
  - Hepatorenal syndrome [None]
  - Erythema [Recovering/Resolving]
  - Dysphonia [None]
  - Decreased appetite [None]
  - C-reactive protein decreased [Recovering/Resolving]
  - Diarrhoea [Recovered/Resolved]
  - Hepatocellular carcinoma [None]
  - Renal impairment [Recovered/Resolved]
  - Aspartate aminotransferase increased [None]
  - Dehydration [None]
  - Erythema [Recovered/Resolved]
  - Blood alkaline phosphatase increased [None]

NARRATIVE: CASE EVENT DATE: 20171214
